FAERS Safety Report 19295024 (Version 1)
Quarter: 2021Q2

REPORT INFORMATION
  Report Type: Spontaneous
  Country: RS (occurrence: RS)
  Receive Date: 20210524
  Receipt Date: 20210524
  Transmission Date: 20210717
  Serious: Yes (Death, Other)
  Sender: FDA-Public Use
  Company Number: RS-AMGEN-SRBSP2021078365

PATIENT
  Age: 72 Year
  Sex: Male

DRUGS (2)
  1. METHYLPREDNISOLON [METHYLPREDNISOLONE] [Concomitant]
     Active Substance: METHYLPREDNISOLONE
     Dosage: UNK
  2. NPLATE [Suspect]
     Active Substance: ROMIPLOSTIM
     Indication: IMMUNE THROMBOCYTOPENIA
     Dosage: 2.5 MICROGRAM/KILOGRAM, QWK
     Route: 065

REACTIONS (6)
  - Pyrexia [Unknown]
  - Haemorrhage intracranial [Fatal]
  - Epistaxis [Unknown]
  - Thrombocytosis [Unknown]
  - Asymptomatic COVID-19 [Unknown]
  - Haematuria [Unknown]
